FAERS Safety Report 7258154-8 (Version None)
Quarter: 2011Q1

REPORT INFORMATION
  Report Type: 
  Country: None (occurrence: None)
  Receive Date: 20110129
  Receipt Date: 20100706
  Transmission Date: 20110831
  Serious: No
  Sender: FDA-Public Use
  Company Number: US-ABBOTT-10P-163-0655752-00

PATIENT
  Age: 59 Year
  Sex: Female

DRUGS (4)
  1. BUTALBITAL W/ ASPIRIN + CAFFEINE [Concomitant]
     Indication: HEADACHE
     Dosage: 50/325/1552 EVERY 4 HOURS IF NEEDED
  2. BONIVA [Concomitant]
     Indication: ARTHRITIS
     Route: 048
  3. HUMIRA [Suspect]
     Indication: RHEUMATOID ARTHRITIS
     Dates: start: 20091201
  4. IBUPROFEN [Concomitant]
     Indication: PAIN
     Route: 048

REACTIONS (4)
  - OEDEMA PERIPHERAL [None]
  - HYPERHIDROSIS [None]
  - ARTHRALGIA [None]
  - INSOMNIA [None]
